FAERS Safety Report 17206275 (Version 1)
Quarter: 2020Q1

REPORT INFORMATION
  Report Type: Spontaneous
  Country: US (occurrence: US)
  Receive Date: 20191226
  Receipt Date: 20191226
  Transmission Date: 20200409
  Serious: Yes (Other)
  Sender: FDA-Public Use
  Company Number: None

PATIENT
  Age: 34 Year
  Sex: Female
  Weight: 72 kg

DRUGS (11)
  1. ACYCLOVIR. [Concomitant]
     Active Substance: ACYCLOVIR
  2. EQUATE EYE ALLERGY RELIEF DROPS [Suspect]
     Active Substance: NAPHAZOLINE HYDROCHLORIDE\PHENIRAMINE MALEATE
     Indication: EYE ALLERGY
     Dosage: ?          QUANTITY:2 DROP(S);?
     Route: 047
  3. PROGESTERONE. [Concomitant]
     Active Substance: PROGESTERONE
  4. ENERGY NOW HERBAL SUPPLEMENT [Concomitant]
  5. ADDERALL [Concomitant]
     Active Substance: AMPHETAMINE ASPARTATE\AMPHETAMINE SULFATE\DEXTROAMPHETAMINE SACCHARATE\DEXTROAMPHETAMINE SULFATE
  6. ESTRADIOL. [Concomitant]
     Active Substance: ESTRADIOL
  7. B-12 GUMMIES [Concomitant]
  8. ALBUTEROL. [Concomitant]
     Active Substance: ALBUTEROL
  9. WELLBUTRIN [Concomitant]
     Active Substance: BUPROPION HYDROCHLORIDE
  10. BENADRYL [Concomitant]
     Active Substance: DIPHENHYDRAMINE HYDROCHLORIDE
  11. VITAMIN C [Concomitant]
     Active Substance: ASCORBIC ACID

REACTIONS (11)
  - Recalled product administered [None]
  - Infection [None]
  - Vision blurred [None]
  - Photophobia [None]
  - Eye discharge [None]
  - Recalled product [None]
  - Visual impairment [None]
  - Corneal oedema [None]
  - Product substitution issue [None]
  - Eye allergy [None]
  - Therapeutic response decreased [None]

NARRATIVE: CASE EVENT DATE: 20191015
